FAERS Safety Report 10248777 (Version 1)
Quarter: 2014Q2

REPORT INFORMATION
  Report Type: Spontaneous
  Country: US (occurrence: None)
  Receive Date: 20140618
  Receipt Date: 20140618
  Transmission Date: 20141212
  Serious: Yes (Other)
  Sender: FDA-Public Use
  Company Number: None

PATIENT
  Age: 57 Year
  Sex: Male
  Weight: 107.96 kg

DRUGS (1)
  1. TRAMADOL/ACETAMINOPHEN [Suspect]
     Indication: PAIN
     Dosage: 1 TAB Q 4 PO
     Route: 048
     Dates: start: 200501, end: 200502

REACTIONS (2)
  - Drug ineffective [None]
  - Diarrhoea [None]
